FAERS Safety Report 18315855 (Version 2)
Quarter: 2020Q4

REPORT INFORMATION
  Report Type: Other
  Country: CA (occurrence: CA)
  Receive Date: 20200927
  Receipt Date: 20201201
  Transmission Date: 20210113
  Serious: Yes (Hospitalization, Other)
  Sender: FDA-Public Use
  Company Number: CA-CELLTRION INC.-2020CA026895

PATIENT

DRUGS (16)
  1. LOSEC [Concomitant]
     Active Substance: OMEPRAZOLE
  2. ACETAMINOPHEN. [Concomitant]
     Active Substance: ACETAMINOPHEN
  3. METHYLPREDNISOLONE. [Concomitant]
     Active Substance: METHYLPREDNISOLONE
  4. OMEPRAZOLE. [Concomitant]
     Active Substance: OMEPRAZOLE
  5. RITUXIMAB (UNKNOWN) [Suspect]
     Active Substance: RITUXIMAB
     Dosage: UNK
     Route: 042
  6. RITUXIMAB (UNKNOWN) [Suspect]
     Active Substance: RITUXIMAB
     Indication: RHEUMATOID ARTHRITIS
     Dosage: 1000 MILLIGRAM
     Route: 042
  7. DIPHENHYDRAMINE HCL [Concomitant]
     Active Substance: DIPHENHYDRAMINE HYDROCHLORIDE
     Indication: PREMEDICATION
     Dosage: 50.0 MILLIGRAM, TOTAL
     Route: 048
  8. ACETAMINOPHEN. [Concomitant]
     Active Substance: ACETAMINOPHEN
     Indication: PREMEDICATION
     Dosage: 650.0 MILLIGRAM, TOTAL
     Route: 048
  9. ATACAND [Concomitant]
     Active Substance: CANDESARTAN CILEXETIL
     Route: 065
  10. DIPHENHYDRAMINE. [Concomitant]
     Active Substance: DIPHENHYDRAMINE
     Route: 065
  11. MIRTAZAPINE. [Concomitant]
     Active Substance: MIRTAZAPINE
     Route: 065
  12. TRAMACET [Suspect]
     Active Substance: ACETAMINOPHEN\TRAMADOL
     Indication: PRODUCT USED FOR UNKNOWN INDICATION
     Route: 065
  13. TRAMADOL HYDROCHLORIDE. [Suspect]
     Active Substance: TRAMADOL HYDROCHLORIDE
     Indication: PRODUCT USED FOR UNKNOWN INDICATION
     Route: 065
  14. ARAVA [Concomitant]
     Active Substance: LEFLUNOMIDE
     Route: 065
  15. DOCOSAHEXAENOIC ACID;EICOSAPENTAENOIC ACID [Concomitant]
     Active Substance: DOCONEXENT\ICOSAPENT
  16. OMEGA 3 [DOCOSAHEXAENOIC ACID;EICOSAPENTAENOIC ACID] [Concomitant]
     Active Substance: DOCONEXENT\ICOSAPENT

REACTIONS (36)
  - Balance disorder [Not Recovered/Not Resolved]
  - Abdominal pain [Not Recovered/Not Resolved]
  - Laryngitis [Not Recovered/Not Resolved]
  - Wound infection [Not Recovered/Not Resolved]
  - Wheezing [Not Recovered/Not Resolved]
  - Productive cough [Not Recovered/Not Resolved]
  - Cough [Not Recovered/Not Resolved]
  - Hypertension [Not Recovered/Not Resolved]
  - Intentional product use issue [Not Recovered/Not Resolved]
  - Pulmonary fibrosis [Not Recovered/Not Resolved]
  - Tooth disorder [Not Recovered/Not Resolved]
  - Weight increased [Not Recovered/Not Resolved]
  - Arthralgia [Not Recovered/Not Resolved]
  - Bronchitis [Not Recovered/Not Resolved]
  - Pain [Not Recovered/Not Resolved]
  - Off label use [Not Recovered/Not Resolved]
  - Oxygen saturation decreased [Not Recovered/Not Resolved]
  - Blood pressure systolic increased [Not Recovered/Not Resolved]
  - Sinus congestion [Not Recovered/Not Resolved]
  - Alopecia [Not Recovered/Not Resolved]
  - Blood pressure fluctuation [Not Recovered/Not Resolved]
  - Dyspnoea [Not Recovered/Not Resolved]
  - Pyrexia [Not Recovered/Not Resolved]
  - Heart rate increased [Not Recovered/Not Resolved]
  - Haemoglobin decreased [Not Recovered/Not Resolved]
  - Respiratory disorder [Not Recovered/Not Resolved]
  - Localised infection [Not Recovered/Not Resolved]
  - Arthropathy [Not Recovered/Not Resolved]
  - Transient ischaemic attack [Not Recovered/Not Resolved]
  - Blood pressure diastolic abnormal [Not Recovered/Not Resolved]
  - Lower respiratory tract infection [Not Recovered/Not Resolved]
  - Nasopharyngitis [Not Recovered/Not Resolved]
  - Therapeutic product effect decreased [Not Recovered/Not Resolved]
  - Hormone level abnormal [Not Recovered/Not Resolved]
  - Rales [Not Recovered/Not Resolved]
  - Tooth abscess [Not Recovered/Not Resolved]
